FAERS Safety Report 7483332-2 (Version None)
Quarter: 2011Q2

REPORT INFORMATION
  Report Type: 
  Country: None (occurrence: None)
  Receive Date: 20110517
  Receipt Date: 20110510
  Transmission Date: 20111010
  Serious: Yes (Hospitalization)
  Sender: FDA-Public Use
  Company Number: US-TEVA-269229USA

PATIENT
  Sex: Female
  Weight: 68.5 kg

DRUGS (11)
  1. MAGNESIUM OXIDE [Concomitant]
  2. CETUXIMAB [Suspect]
     Indication: HEAD AND NECK CANCER
     Route: 042
     Dates: start: 20101215, end: 20110217
  3. PROCHLORPERAZINE EDISYLATE [Concomitant]
  4. METOPROLOL TARTRATE [Concomitant]
     Dosage: 50 MILLIGRAM;
  5. FLUOROURACIL [Suspect]
     Indication: HEAD AND NECK CANCER
     Route: 042
     Dates: start: 20101215, end: 20110217
  6. FENTANYL [Concomitant]
     Indication: PAIN
     Route: 061
  7. SULFASALAZINE [Concomitant]
     Dosage: 2000 MILLIGRAM;
  8. CETUXIMAB [Suspect]
     Route: 042
     Dates: start: 20110317
  9. FLUOROURACIL [Suspect]
     Route: 042
     Dates: start: 20110324
  10. VICODIN [Concomitant]
  11. CARBOPLATIN [Suspect]
     Indication: HEAD AND NECK CANCER
     Route: 042
     Dates: start: 20101215, end: 20110217

REACTIONS (1)
  - PNEUMONIA [None]
